FAERS Safety Report 11122972 (Version 1)
Quarter: 2015Q2

REPORT INFORMATION
  Report Type: Spontaneous
  Country: US (occurrence: US)
  Receive Date: 20150519
  Receipt Date: 20150519
  Transmission Date: 20150821
  Serious: Yes (Congenital Anomaly, Other)
  Sender: FDA-Public Use
  Company Number: US-UCBSA-2015014867

PATIENT

DRUGS (3)
  1. VIMPAT [Suspect]
     Active Substance: LACOSAMIDE
     Dosage: INCREASED DOSE
     Route: 064
     Dates: start: 2014, end: 20141219
  2. TEMODAR [Concomitant]
     Active Substance: TEMOZOLOMIDE
     Indication: BRAIN NEOPLASM MALIGNANT
     Dosage: UNK
     Route: 064
     Dates: start: 201410, end: 2014
  3. VIMPAT [Suspect]
     Active Substance: LACOSAMIDE
     Indication: SEIZURE
     Dosage: 250 MG, 2X/DAY (BID)
     Route: 064
     Dates: start: 201409, end: 2014

REACTIONS (3)
  - Adactyly [Unknown]
  - Foetal exposure during pregnancy [Unknown]
  - Dysmorphism [Unknown]

NARRATIVE: CASE EVENT DATE: 2014
